FAERS Safety Report 7480522-X (Version None)
Quarter: 2011Q2

REPORT INFORMATION
  Report Type: 
  Country: None (occurrence: None)
  Receive Date: 20110504
  Receipt Date: 20110419
  Transmission Date: 20111010
  Serious: Yes (Hospitalization)
  Sender: FDA-Public Use
  Company Number: AUR-APL-2011-01139

PATIENT
  Age: 64 Year
  Sex: Female

DRUGS (1)
  1. MELOXICAM [Suspect]
     Indication: OSTEOARTHRITIS
     Dosage: 15MG-DAILY-ORAL
     Route: 048
     Dates: start: 20081125

REACTIONS (6)
  - METASTASES TO BONE [None]
  - SPINAL OSTEOARTHRITIS [None]
  - INJURY [None]
  - PAIN [None]
  - MUSCULOSKELETAL DISORDER [None]
  - SPINAL COMPRESSION FRACTURE [None]
